FAERS Safety Report 7408337-9 (Version None)
Quarter: 2011Q2

REPORT INFORMATION
  Report Type: 
  Country: None (occurrence: None)
  Receive Date: 20110412
  Receipt Date: 20110404
  Transmission Date: 20111010
  Serious: Yes (Other)
  Sender: FDA-Public Use
  Company Number: US-JNJFOC-20110104817

PATIENT
  Sex: Female
  Weight: 63.5 kg

DRUGS (1)
  1. ELMIRON [Suspect]
     Indication: CYSTITIS INTERSTITIAL
     Route: 048

REACTIONS (5)
  - ATRIAL FIBRILLATION [None]
  - VITAMIN B12 DECREASED [None]
  - HYPERTENSION [None]
  - BLOOD FOLATE DECREASED [None]
  - BLOOD IRON DECREASED [None]
